APPROVED DRUG PRODUCT: HYDROXYZINE HYDROCHLORIDE
Active Ingredient: HYDROXYZINE HYDROCHLORIDE
Strength: 10MG/5ML
Dosage Form/Route: SYRUP;ORAL
Application: A040010 | Product #001
Applicant: HIKMA PHARMACEUTICALS USA INC
Approved: Oct 28, 1994 | RLD: No | RS: No | Type: DISCN